FAERS Safety Report 20003054 (Version 1)
Quarter: 2021Q4

REPORT INFORMATION
  Report Type: Spontaneous
  Country: US (occurrence: US)
  Receive Date: 20211027
  Receipt Date: 20211027
  Transmission Date: 20220304
  Serious: No
  Sender: FDA-Public Use
  Company Number: US-AMGEN-USASP2021161274

PATIENT
  Age: 64 Year
  Sex: Female

DRUGS (2)
  1. NPLATE [Suspect]
     Active Substance: ROMIPLOSTIM
     Indication: Immune thrombocytopenia
     Dosage: DOSE SOMETIMES DOUBLED OR QUADRUPLED, QWK
     Route: 065
     Dates: start: 202104
  2. COVID-19 VACCINE [Concomitant]
     Dosage: UNK

REACTIONS (5)
  - Breast pain [Unknown]
  - Pallor [Unknown]
  - Tachycardia [Unknown]
  - Dyspnoea [Unknown]
  - Platelet count abnormal [Unknown]

NARRATIVE: CASE EVENT DATE: 20211001
